FAERS Safety Report 18605592 (Version 1)
Quarter: 2020Q4

REPORT INFORMATION
  Report Type: Spontaneous
  Country: ES (occurrence: ES)
  Receive Date: 20201211
  Receipt Date: 20201211
  Transmission Date: 20210114
  Serious: Yes (Hospitalization)
  Sender: FDA-Public Use
  Company Number: ES-MYLANLABS-2020M1100254

PATIENT
  Age: 74 Year
  Sex: Female

DRUGS (10)
  1. OMEPRAZOL                          /00661201/ [Concomitant]
     Active Substance: OMEPRAZOLE
     Indication: OSTEOARTHRITIS
     Dosage: 20 MILLIGRAM, QD
     Route: 048
     Dates: start: 20170803
  2. ATENOLOL. [Concomitant]
     Active Substance: ATENOLOL
     Indication: HYPERTENSION
     Dosage: 50 MILLIGRAM
     Route: 048
     Dates: start: 20180920
  3. NAPROXENO                          /00256201/ [Concomitant]
     Active Substance: NAPROXEN
     Indication: SCIATICA
     Dosage: 550 MILLIGRAM, BID
     Route: 048
     Dates: start: 20201027
  4. SERTRALINE [Suspect]
     Active Substance: SERTRALINE HYDROCHLORIDE
     Indication: OSTEOARTHRITIS
     Dosage: 100 MILLIGRAM, QD
     Route: 048
     Dates: start: 20201028
  5. CALCIO CARBONATO [Concomitant]
     Indication: OSTEOPOROSIS
     Dosage: 1 DOSAGE FORM, QD
     Route: 048
     Dates: start: 20180109
  6. PREGABALINA [Concomitant]
     Active Substance: PREGABALIN
     Indication: SCIATICA
     Dosage: 75 MILLIGRAM, QD
     Route: 048
     Dates: start: 20201027
  7. TRAMADOL/PARACETAMOL [Interacting]
     Active Substance: ACETAMINOPHEN\TRAMADOL
     Indication: SCIATICA
     Dosage: 0.5 DOSAGE FORM, Q8H
     Route: 048
     Dates: start: 20201027
  8. RAMIPRIL/HIDROCLOROTIAZIDA TECNIGEN [Concomitant]
     Active Substance: HYDROCHLOROTHIAZIDE\RAMIPRIL
     Indication: DYSPEPSIA
     Dosage: 5 MILLIGRAM, QD
     Route: 048
     Dates: start: 20190710
  9. EXELON [Concomitant]
     Active Substance: RIVASTIGMINE TARTRATE
     Indication: DEMENTIA ALZHEIMER^S TYPE
     Dosage: 9.5 MILLIGRAM, QD
     Route: 062
     Dates: start: 20201029
  10. ATORVASTATINA ZENTIVA [Concomitant]
     Active Substance: ATORVASTATIN CALCIUM
     Indication: DYSPEPSIA
     Dosage: 1 DOSAGE FORM
     Route: 048
     Dates: start: 20190709

REACTIONS (3)
  - Drug interaction [Unknown]
  - Off label use [Unknown]
  - Disorientation [Recovering/Resolving]

NARRATIVE: CASE EVENT DATE: 20201102
